FAERS Safety Report 4438449-3 (Version None)
Quarter: 2004Q3

REPORT INFORMATION
  Report Type: 
  Country: None (occurrence: None)
  Receive Date: 20040728
  Receipt Date: 20040324
  Transmission Date: 20050211
  Serious: No
  Sender: FDA-Public Use
  Company Number: USA040363018

PATIENT
  Age: 47 Year
  Sex: Female

DRUGS (6)
  1. STRATTERA [Suspect]
     Dosage: 30 MG
     Dates: start: 20040313
  2. RANITIDINE [Concomitant]
  3. ADDERALL 20 [Concomitant]
  4. KLONOPIN [Concomitant]
  5. DEPAKOTE [Concomitant]
  6. NEURONTIN [Concomitant]

REACTIONS (5)
  - DIZZINESS [None]
  - HEADACHE [None]
  - NAUSEA [None]
  - TREMOR [None]
  - VOMITING [None]
